FAERS Safety Report 18628891 (Version 1)
Quarter: 2020Q4

REPORT INFORMATION
  Report Type: Spontaneous
  Country: CA (occurrence: CA)
  Receive Date: 20201217
  Receipt Date: 20201217
  Transmission Date: 20210114
  Serious: Yes (Other)
  Sender: FDA-Public Use
  Company Number: CA-UNITED THERAPEUTICS-UNT-2020-019183

PATIENT
  Sex: Female

DRUGS (2)
  1. HYDROMORPHONE [Suspect]
     Active Substance: HYDROMORPHONE
     Indication: PAIN PROPHYLAXIS
     Dosage: UNK, CONTINUING (CONTINUOUS INFUSION)
     Route: 041
  2. UNITUXIN [Suspect]
     Active Substance: DINUTUXIMAB
     Indication: NEUROBLASTOMA
     Dosage: UNK, CYCLICAL (CYCLE1)
     Route: 041

REACTIONS (3)
  - Myoclonus [Recovered/Resolved]
  - Product use in unapproved indication [Unknown]
  - Urinary retention [Recovered/Resolved]
